FAERS Safety Report 14435973 (Version 1)
Quarter: 2018Q1

REPORT INFORMATION
  Report Type: Spontaneous
  Country: US (occurrence: US)
  Receive Date: 20180125
  Receipt Date: 20180125
  Transmission Date: 20180509
  Serious: No
  Sender: FDA-Public Use
  Company Number: US-UNITED THERAPEUTICS-UNT-2017-008785

PATIENT
  Sex: Female
  Weight: 103.86 kg

DRUGS (2)
  1. REMODULIN [Suspect]
     Active Substance: TREPROSTINIL
     Indication: PULMONARY HYPERTENSION
     Dosage: 0.086 ?G/KG, CONTINUING
     Route: 058
     Dates: start: 20160224
  2. SILDENAFIL CITRATE. [Concomitant]
     Active Substance: SILDENAFIL CITRATE
     Indication: PRODUCT USED FOR UNKNOWN INDICATION

REACTIONS (5)
  - Drug dose omission [Unknown]
  - Nausea [Recovering/Resolving]
  - Nervousness [Recovering/Resolving]
  - Heart rate increased [Recovering/Resolving]
  - Headache [Recovering/Resolving]
